FAERS Safety Report 10255568 (Version 1)
Quarter: 2014Q2

REPORT INFORMATION
  Report Type: Spontaneous
  Country: CN (occurrence: CN)
  Receive Date: 20140624
  Receipt Date: 20140624
  Transmission Date: 20141212
  Serious: Yes (Other)
  Sender: FDA-Public Use
  Company Number: CN-SA-2014SA078111

PATIENT
  Sex: 0

DRUGS (1)
  1. PLAVIX [Suspect]
     Indication: THROMBOSIS
     Route: 048

REACTIONS (1)
  - Angina pectoris [Unknown]
